FAERS Safety Report 22351885 (Version 1)
Quarter: 2023Q2

REPORT INFORMATION
  Report Type: Spontaneous
  Country: US (occurrence: None)
  Receive Date: 20230522
  Receipt Date: 20230522
  Transmission Date: 20230721
  Serious: Yes (Hospitalization)
  Sender: FDA-Public Use
  Company Number: None

PATIENT
  Age: 66 Year
  Sex: Male
  Weight: 97.52 kg

DRUGS (37)
  1. LENALIDOMIDE [Suspect]
     Active Substance: LENALIDOMIDE
     Indication: Plasma cell myeloma
     Dosage: OTHER FREQUENCY : D 3WKS ON, 1WK OFF;?
     Route: 048
     Dates: end: 20230512
  2. ALOXI [Concomitant]
     Active Substance: PALONOSETRON HYDROCHLORIDE
  3. AMLODIPINE [Concomitant]
     Active Substance: AMLODIPINE BESYLATE
  4. AMOXICILLIN [Concomitant]
     Active Substance: AMOXICILLIN
  5. ASPIRIN [Concomitant]
     Active Substance: ASPIRIN
  6. BENADRYL [Concomitant]
     Active Substance: DIPHENHYDRAMINE HYDROCHLORIDE
  7. CALCIUM\CHOLECALCIFEROL [Concomitant]
     Active Substance: CALCIUM\CHOLECALCIFEROL
  8. CLARITIN-D NOS [Concomitant]
     Active Substance: LORATADINE\PSEUDOEPHEDRINE SULFATE
  9. COLACE [Concomitant]
     Active Substance: DOCUSATE SODIUM
  10. CYANOCOBALAMIN [Concomitant]
     Active Substance: CYANOCOBALAMIN
  11. CYCLOBENZAPRINE [Concomitant]
     Active Substance: CYCLOBENZAPRINE
  12. DARZALEX [Concomitant]
     Active Substance: DARATUMUMAB
  13. DEXEMETHASONE [Concomitant]
  14. DULCOLAX NOS [Concomitant]
     Active Substance: BISACODYL OR DOCUSATE SODIUM
  15. MINERALS\VITAMINS [Concomitant]
     Active Substance: MINERALS\VITAMINS
  16. EMPLICITI [Concomitant]
     Active Substance: ELOTUZUMAB
  17. FOLIC ACID [Concomitant]
     Active Substance: FOLIC ACID
  18. GABAPENTIN [Concomitant]
     Active Substance: GABAPENTIN
  19. NORCO [Concomitant]
     Active Substance: ACETAMINOPHEN\HYDROCODONE BITARTRATE
  20. IBUPROFEN [Concomitant]
     Active Substance: IBUPROFEN
  21. KYPROLIS [Concomitant]
     Active Substance: CARFILZOMIB
  22. LISINOPRIL [Concomitant]
     Active Substance: LISINOPRIL
  23. NAPROSYN [Concomitant]
     Active Substance: NAPROXEN
  24. NINLARO [Concomitant]
     Active Substance: IXAZOMIB CITRATE
  25. OMEPRAZOLE [Concomitant]
     Active Substance: OMEPRAZOLE
  26. VITAMINS [Concomitant]
     Active Substance: VITAMINS
  27. CHONDROITIN SULFATE A\GLUCOSAMINE [Concomitant]
     Active Substance: CHONDROITIN SULFATE A\GLUCOSAMINE
  28. PENTOXIFYLINE-PREDNISONE [Concomitant]
  29. PROTEIN POWDER [Concomitant]
  30. COLRIGHT [Concomitant]
  31. SIMVASTATIN [Concomitant]
     Active Substance: SIMVASTATIN
  32. CYANOCOBALAMIN\DEXPANTHENOL\NIACINAMIDE\PYRIDOXINE HYDROCHLORIDE\RIBOF [Concomitant]
     Active Substance: CYANOCOBALAMIN\DEXPANTHENOL\NIACINAMIDE\PYRIDOXINE HYDROCHLORIDE\RIBOFLAVIN 5^-PHOSPHATE SODIUM\THIA
  33. TAMSULOSIN [Concomitant]
     Active Substance: TAMSULOSIN
  34. TYLENOL [Concomitant]
     Active Substance: ACETAMINOPHEN
  35. VALACYCLOVIR [Concomitant]
     Active Substance: VALACYCLOVIR HYDROCHLORIDE
  36. VIAGRA [Concomitant]
     Active Substance: SILDENAFIL CITRATE
  37. VITAMIN E [Concomitant]
     Active Substance: .ALPHA.-TOCOPHEROL

REACTIONS (1)
  - Pneumonia [None]

NARRATIVE: CASE EVENT DATE: 20230512
